FAERS Safety Report 12289942 (Version 3)
Quarter: 2016Q2

REPORT INFORMATION
  Report Type: Spontaneous
  Country: US (occurrence: US)
  Receive Date: 20160421
  Receipt Date: 20160527
  Transmission Date: 20160815
  Serious: Yes (Other)
  Sender: FDA-Public Use
  Company Number: US-MDT-ADR-2016-00721

PATIENT
  Age: 12 Year
  Sex: Female

DRUGS (25)
  1. LIORESAL [Suspect]
     Active Substance: BACLOFEN
     Route: 037
     Dates: start: 20130719
  2. LIORESAL [Suspect]
     Active Substance: BACLOFEN
     Route: 037
     Dates: start: 20131223
  3. LIORESAL [Suspect]
     Active Substance: BACLOFEN
     Dosage: 782.4 MCG/DAY
     Route: 037
     Dates: start: 20151015
  4. BACLOFEN. [Suspect]
     Active Substance: BACLOFEN
     Route: 048
  5. LIORESAL [Suspect]
     Active Substance: BACLOFEN
     Route: 037
     Dates: start: 20130916
  6. LIORESAL [Suspect]
     Active Substance: BACLOFEN
     Route: 037
     Dates: start: 20140318
  7. LIORESAL [Suspect]
     Active Substance: BACLOFEN
     Route: 037
     Dates: start: 20140407
  8. LIORESAL [Suspect]
     Active Substance: BACLOFEN
     Dosage: 634.1 MCG/DAY
     Route: 037
     Dates: start: 20140214
  9. LIORESAL [Suspect]
     Active Substance: BACLOFEN
     Dosage: 999.9 MCG/DAY
     Route: 037
     Dates: start: 20160209
  10. LIORESAL [Suspect]
     Active Substance: BACLOFEN
     Route: 037
     Dates: start: 20131104
  11. LIORESAL [Suspect]
     Active Substance: BACLOFEN
     Dosage: 824.7 MCG/DAY
     Route: 037
     Dates: start: 20151218
  12. LIORESAL [Suspect]
     Active Substance: BACLOFEN
     Route: 037
  13. LIORESAL [Suspect]
     Active Substance: BACLOFEN
     Route: 037
     Dates: start: 20130522
  14. LIORESAL [Suspect]
     Active Substance: BACLOFEN
     Dosage: 924.7 MCG/DAY
     Route: 037
     Dates: start: 20160109
  15. LIORESAL [Suspect]
     Active Substance: BACLOFEN
     Dosage: 924.7 MCG/DAY
     Route: 037
     Dates: start: 20160119
  16. LIORESAL [Suspect]
     Active Substance: BACLOFEN
     Route: 037
     Dates: start: 20160314
  17. LIORESAL [Suspect]
     Active Substance: BACLOFEN
     Route: 037
     Dates: start: 20160329
  18. LIORESAL [Suspect]
     Active Substance: BACLOFEN
     Dosage: 828.9 MCG/DAY
     Route: 037
     Dates: start: 20151124
  19. LIORESAL [Suspect]
     Active Substance: BACLOFEN
     Dosage: 733.5 MCG/DAY
     Route: 037
     Dates: start: 20140317
  20. LIORESAL [Suspect]
     Active Substance: BACLOFEN
     Route: 037
     Dates: start: 20140321
  21. LIORESAL [Suspect]
     Active Substance: BACLOFEN
     Dosage: 750.1 MCG/DAY
     Route: 037
     Dates: start: 20140528
  22. LIORESAL [Suspect]
     Active Substance: BACLOFEN
     Dosage: 782.4 MCG/DAY
     Route: 037
     Dates: start: 20151013
  23. LIORESAL [Suspect]
     Active Substance: BACLOFEN
     Dosage: 924.7 MCG/DAY
     Route: 037
     Dates: start: 20151218
  24. LIORESAL [Suspect]
     Active Substance: BACLOFEN
     Route: 037
     Dates: start: 20160223
  25. LIORESAL [Suspect]
     Active Substance: BACLOFEN
     Dosage: 749.3 MCG/DAY
     Route: 037
     Dates: start: 20150728

REACTIONS (3)
  - Drug withdrawal syndrome [Unknown]
  - Malaise [Unknown]
  - Hypotonia [Unknown]

NARRATIVE: CASE EVENT DATE: 20140317
